FAERS Safety Report 21673721 (Version 1)
Quarter: 2022Q4

REPORT INFORMATION
  Report Type: Spontaneous
  Country: US (occurrence: US)
  Receive Date: 20221202
  Receipt Date: 20221202
  Transmission Date: 20230112
  Serious: No
  Sender: FDA-Public Use
  Company Number: US-PFIZER INC-202201341628

PATIENT
  Age: 65 Year
  Sex: Female

DRUGS (1)
  1. IBRANCE [Suspect]
     Active Substance: PALBOCICLIB
     Dosage: DAILY FROM DAYS 1-21 OF 28 DAYS CYCLE
     Dates: start: 20221025

REACTIONS (2)
  - Full blood count decreased [Unknown]
  - Tremor [Recovered/Resolved]
